FAERS Safety Report 9625051 (Version 2)
Quarter: 2013Q4

REPORT INFORMATION
  Report Type: Spontaneous
  Country: ID (occurrence: ID)
  Receive Date: 20131016
  Receipt Date: 20131024
  Transmission Date: 20140711
  Serious: Yes (Other)
  Sender: FDA-Public Use
  Company Number: ID-ROCHE-1288747

PATIENT
  Age: 82 Year
  Sex: Female

DRUGS (2)
  1. LUCENTIS [Suspect]
     Indication: DIABETES MELLITUS
     Dosage: 0.5 MG/ML
     Route: 050
     Dates: start: 20131011
  2. LUCENTIS [Suspect]
     Indication: VITREOUS HAEMORRHAGE

REACTIONS (3)
  - Conjunctival haemorrhage [Recovered/Resolved]
  - Needle issue [Unknown]
  - Off label use [Unknown]
